FAERS Safety Report 4275920-1 (Version None)
Quarter: 2004Q1

REPORT INFORMATION
  Report Type: 
  Country: None (occurrence: None)
  Receive Date: 20040121
  Receipt Date: 20030313
  Transmission Date: 20041129
  Serious: No
  Sender: FDA-Public Use
  Company Number: US-GLAXOSMITHKLINE-A0400378A

PATIENT
  Age: 83 Year
  Sex: Female

DRUGS (1)
  1. VALTREX [Suspect]
     Indication: HERPES ZOSTER
     Dosage: 1000MG THREE TIMES PER DAY
     Route: 048
     Dates: start: 20030309

REACTIONS (3)
  - BLOOD CREATININE INCREASED [None]
  - RENAL FAILURE [None]
  - RENAL IMPAIRMENT [None]
